FAERS Safety Report 6037367-7 (Version None)
Quarter: 2009Q1

REPORT INFORMATION
  Report Type: 
  Country: None (occurrence: None)
  Receive Date: 20090114
  Receipt Date: 20081231
  Transmission Date: 20090719
  Serious: Yes (Hospitalization)
  Sender: FDA-Public Use
  Company Number: IE-GENENTECH-272855

PATIENT
  Sex: Female

DRUGS (6)
  1. XOLAIR [Suspect]
     Indication: DRUG USE FOR UNKNOWN INDICATION
     Dosage: 375 MG, 2/WEEK
     Route: 058
     Dates: start: 20081030
  2. SERETIDE [Concomitant]
     Indication: ASTHMA
     Dosage: 250 A?G, UNK
  3. ALBUTEROL [Concomitant]
     Indication: ASTHMA
     Dosage: UNK
  4. SINGULAIR [Concomitant]
     Indication: ASTHMA
     Dosage: UNK
  5. THEOPHYLLINE [Concomitant]
     Indication: ASTHMA
  6. OMEPRAZOLE [Concomitant]
     Indication: ASTHMA

REACTIONS (3)
  - ASTHMA [None]
  - DEPRESSED MOOD [None]
  - PNEUMONIA MYCOPLASMAL [None]
